FAERS Safety Report 25571760 (Version 1)
Quarter: 2025Q3

REPORT INFORMATION
  Report Type: Report from Study
  Country: US (occurrence: US)
  Receive Date: 20250717
  Receipt Date: 20250717
  Transmission Date: 20251021
  Serious: Yes (Hospitalization, Other)
  Sender: ROCHE
  Company Number: US-ROCHE-10000340630

PATIENT
  Age: 8 Year
  Sex: Female

DRUGS (2)
  1. MYCOPHENOLATE MOFETIL [Suspect]
     Active Substance: MYCOPHENOLATE MOFETIL
     Indication: Prophylaxis against transplant rejection
     Route: 065
  2. TACROLIMUS [Suspect]
     Active Substance: TACROLIMUS
     Indication: Prophylaxis against transplant rejection
     Route: 065

REACTIONS (6)
  - Granulicatella infection [Unknown]
  - Alpha haemolytic streptococcal infection [Unknown]
  - Clostridium difficile infection [Unknown]
  - Aspergillus infection [Unknown]
  - Neutropenic colitis [Unknown]
  - Pneumonia [Unknown]
